FAERS Safety Report 8320461-5 (Version None)
Quarter: 2012Q2

REPORT INFORMATION
  Report Type: 
  Country: None (occurrence: None)
  Receive Date: 20120426
  Receipt Date: 20120426
  Transmission Date: 20120825
  Serious: Yes (Hospitalization, Other)
  Sender: FDA-Public Use
  Company Number: None

PATIENT
  Sex: Male
  Weight: 100.6985 kg

DRUGS (2)
  1. TRAMADOL HCL [Suspect]
     Dosage: 50 MG 1-6/DAY MOUTH
     Route: 048
     Dates: start: 20090101, end: 20120101
  2. TRAMADOL HCL [Suspect]
     Indication: ARTHRITIS
     Dosage: 50 MG 1-4/DAY MOUTH
     Route: 048
     Dates: start: 20120101

REACTIONS (5)
  - ANGER [None]
  - PRODUCT SUBSTITUTION ISSUE [None]
  - MOOD SWINGS [None]
  - RESTLESSNESS [None]
  - DRUG DEPENDENCE [None]
